FAERS Safety Report 6712496-0 (Version None)
Quarter: 2010Q2

REPORT INFORMATION
  Report Type: 
  Country: None (occurrence: None)
  Receive Date: 20100505
  Receipt Date: 20100505
  Transmission Date: 20101027
  Serious: No
  Sender: FDA-Public Use
  Company Number: None

PATIENT
  Age: 51 Year
  Sex: Male
  Weight: 99.85 kg

DRUGS (1)
  1. INTEGRILIN [Suspect]
     Dosage: IV DRIP
     Dates: start: 20100301, end: 20100301

REACTIONS (4)
  - DRUG DISPENSING ERROR [None]
  - INCORRECT DOSE ADMINISTERED [None]
  - MEDICATION ERROR [None]
  - PRODUCT PACKAGING ISSUE [None]
